FAERS Safety Report 17364414 (Version 3)
Quarter: 2020Q2

REPORT INFORMATION
  Report Type: Spontaneous
  Country: FR (occurrence: FR)
  Receive Date: 20200204
  Receipt Date: 20200508
  Transmission Date: 20200713
  Serious: Yes (Hospitalization)
  Sender: FDA-Public Use
  Company Number: FR-SUN PHARMACEUTICAL INDUSTRIES LTD-2020RR-235508

PATIENT
  Age: 69 Year
  Sex: Female
  Weight: 68 kg

DRUGS (1)
  1. LETROZOLE. [Suspect]
     Active Substance: LETROZOLE
     Indication: BREAST CANCER
     Dosage: ()
     Route: 048
     Dates: start: 201910, end: 20191224

REACTIONS (3)
  - Subarachnoid haemorrhage [Recovering/Resolving]
  - Dry mouth [Not Recovered/Not Resolved]
  - Hypertension [Recovered/Resolved]

NARRATIVE: CASE EVENT DATE: 201912
